FAERS Safety Report 17333521 (Version 1)
Quarter: 2020Q1

REPORT INFORMATION
  Report Type: Spontaneous
  Country: US (occurrence: US)
  Receive Date: 20200128
  Receipt Date: 20200128
  Transmission Date: 20200409
  Serious: Yes (Hospitalization, Other)
  Sender: FDA-Public Use
  Company Number: US-NAPPMUNDI-USA-2020-0149757

PATIENT
  Sex: Female

DRUGS (1)
  1. OXYCODONE HYDROCHLORIDE (SIMILAR TO NDA 22-272) [Suspect]
     Active Substance: OXYCODONE HYDROCHLORIDE
     Indication: MULTIPLE FRACTURES
     Route: 048

REACTIONS (5)
  - Dysarthria [Unknown]
  - Encephalitis [Unknown]
  - Impaired driving ability [Unknown]
  - Lethargy [Unknown]
  - Seizure [Unknown]

NARRATIVE: CASE EVENT DATE: 201511
